FAERS Safety Report 14186135 (Version 1)
Quarter: 2017Q4

REPORT INFORMATION
  Report Type: Spontaneous
  Country: US (occurrence: US)
  Receive Date: 20171114
  Receipt Date: 20171114
  Transmission Date: 20180321
  Serious: No
  Sender: FDA-Public Use
  Company Number: US-ELI_LILLY_AND_COMPANY-US201710012067

PATIENT
  Sex: Female

DRUGS (3)
  1. HUMALOG [Suspect]
     Active Substance: INSULIN LISPRO
     Dosage: UNK, PRN, ON A SLIDING SCALE WITH A BASE DOSE OF 10UNITS AND GOING UP FROM THERE AS NEEDED.
     Route: 065
  2. HUMALOG [Suspect]
     Active Substance: INSULIN LISPRO
     Indication: TYPE 2 DIABETES MELLITUS
     Dosage: UNK, PRN, ON A SLIDING SCALE WITH A BASE DOSE OF 10UNITS AND GOING UP FROM THERE AS NEEDED.
     Route: 065
     Dates: start: 20151027
  3. BASAGLAR [Suspect]
     Active Substance: INSULIN GLARGINE
     Indication: TYPE 2 DIABETES MELLITUS
     Dosage: UNK, UNKNOWN
     Route: 065
     Dates: start: 20171026

REACTIONS (12)
  - Fluid intake reduced [Unknown]
  - Presyncope [Unknown]
  - Blood glucose increased [Unknown]
  - Stress [Unknown]
  - Tongue discolouration [Unknown]
  - Swollen tongue [Unknown]
  - Dizziness [Unknown]
  - Head discomfort [Recovering/Resolving]
  - Asthenia [Unknown]
  - Dysgeusia [Unknown]
  - Exophthalmos [Unknown]
  - Headache [Unknown]
